FAERS Safety Report 23329242 (Version 5)
Quarter: 2024Q3

REPORT INFORMATION
  Report Type: Spontaneous
  Country: US (occurrence: US)
  Receive Date: 20231222
  Receipt Date: 20240821
  Transmission Date: 20241017
  Serious: No
  Sender: BIOGEN
  Company Number: US-BIOGEN-2023BI01236780

PATIENT
  Age: 52 Year
  Sex: Female

DRUGS (1)
  1. TYSABRI [Suspect]
     Active Substance: NATALIZUMAB
     Indication: Multiple sclerosis
     Route: 050
     Dates: start: 20230209

REACTIONS (7)
  - Multiple sclerosis relapse [Not Recovered/Not Resolved]
  - Illness [Unknown]
  - Hallucination [Unknown]
  - Head injury [Unknown]
  - Traumatic haemorrhage [Unknown]
  - Fall [Recovered/Resolved]
  - Skin laceration [Unknown]

NARRATIVE: CASE EVENT DATE: 20231001
